FAERS Safety Report 19481683 (Version 4)
Quarter: 2022Q3

REPORT INFORMATION
  Report Type: Spontaneous
  Country: US (occurrence: US)
  Receive Date: 20210701
  Receipt Date: 20220817
  Transmission Date: 20221027
  Serious: Yes (Hospitalization)
  Sender: FDA-Public Use
  Company Number: US-TEVA-2021-US-1927348

PATIENT
  Age: 12 Year
  Sex: Male

DRUGS (12)
  1. METRONIDAZOLE [Suspect]
     Active Substance: METRONIDAZOLE
     Indication: Chronic granulomatous disease
     Route: 065
  2. METRONIDAZOLE [Suspect]
     Active Substance: METRONIDAZOLE
     Indication: Colitis
  3. PREDNISONE [Suspect]
     Active Substance: PREDNISONE
     Indication: Chronic granulomatous disease
     Route: 042
  4. PREDNISONE [Suspect]
     Active Substance: PREDNISONE
     Indication: Colitis
  5. MESALAMINE [Concomitant]
     Active Substance: MESALAMINE
     Indication: Chronic granulomatous disease
     Route: 065
  6. MESALAMINE [Concomitant]
     Active Substance: MESALAMINE
     Indication: Colitis
  7. AMOXICILLIN [Concomitant]
     Active Substance: AMOXICILLIN
     Indication: Chronic granulomatous disease
     Route: 065
  8. AMOXICILLIN [Concomitant]
     Active Substance: AMOXICILLIN
     Indication: Colitis
  9. DOXYCYCLINE [Concomitant]
     Active Substance: DOXYCYCLINE
     Indication: Chronic granulomatous disease
     Route: 065
  10. DOXYCYCLINE [Concomitant]
     Active Substance: DOXYCYCLINE
     Indication: Colitis
  11. VANCOMYCIN [Concomitant]
     Active Substance: VANCOMYCIN
     Indication: Chronic granulomatous disease
     Route: 065
  12. VANCOMYCIN [Concomitant]
     Active Substance: VANCOMYCIN
     Indication: Colitis

REACTIONS (3)
  - Neurotoxicity [Recovered/Resolved]
  - Colitis [Unknown]
  - Toxicity to various agents [Unknown]
